FAERS Safety Report 8814022 (Version 1)
Quarter: 2012Q4

REPORT INFORMATION
  Report Type: 
  Country: US (occurrence: US)
  Receive Date: 20120928
  Receipt Date: 20120928
  Transmission Date: 20130627
  Serious: No
  Sender: FDA-Public Use
  Company Number: US-PFIZER INC-2012239187

PATIENT
  Age: 71 Year
  Sex: Male
  Weight: 63.49 kg

DRUGS (1)
  1. EFFEXOR XR [Suspect]
     Dosage: UNK
     Route: 048
     Dates: start: 2002, end: 2002

REACTIONS (1)
  - Drug ineffective [Unknown]
